FAERS Safety Report 6371258-7 (Version None)
Quarter: 2009Q3

REPORT INFORMATION
  Report Type: 
  Country: None (occurrence: None)
  Receive Date: 20090923
  Receipt Date: 20070912
  Transmission Date: 20100115
  Serious: Yes (Other)
  Sender: FDA-Public Use
  Company Number: US-ASTRAZENECA-2006UW27928

PATIENT
  Age: 604 Month
  Sex: Female

DRUGS (20)
  1. SEROQUEL [Suspect]
     Indication: DEPRESSION
     Dosage: 25-800 MG
     Route: 048
     Dates: start: 20050127
  2. SEROQUEL [Suspect]
     Indication: INSOMNIA
     Dosage: 25-800 MG
     Route: 048
     Dates: start: 20050127
  3. SEROQUEL [Suspect]
     Indication: SCHIZOPHRENIA
     Dosage: 25-800 MG
     Route: 048
     Dates: start: 20050127
  4. SEROQUEL [Suspect]
     Indication: SLEEP DISORDER
     Dosage: 25-800 MG
     Route: 048
     Dates: start: 20050127
  5. SEROQUEL [Suspect]
     Route: 048
  6. SEROQUEL [Suspect]
     Route: 048
  7. SEROQUEL [Suspect]
     Route: 048
  8. SEROQUEL [Suspect]
     Route: 048
  9. GLYBURIDE [Concomitant]
     Indication: TYPE 2 DIABETES MELLITUS
     Dosage: 2.5-5 MG
     Dates: start: 20060124
  10. GLUCOPHAGE [Concomitant]
     Indication: TYPE 2 DIABETES MELLITUS
     Dosage: 500-2550 MG
     Dates: start: 20050628
  11. NABUMETONE [Concomitant]
     Indication: BACK PAIN
     Dosage: 750-1500 MG
     Dates: start: 20041112
  12. XANAX [Concomitant]
     Indication: DEPRESSION
     Dosage: 0.5-1.5 MG
     Route: 048
     Dates: start: 19991104
  13. ATENOLOL [Concomitant]
     Dates: start: 20041112
  14. HYDROCHLOROTHIAZIDE [Concomitant]
     Dates: start: 20041112
  15. ZOLOFT [Concomitant]
     Dates: start: 20041112
  16. LEXAPRO [Concomitant]
     Dates: start: 20060124
  17. KLONOPIN [Concomitant]
     Dosage: 0.5-1.5 MG
     Route: 048
     Dates: start: 20050127
  18. BUSPAR [Concomitant]
     Dosage: 15-75 MG
     Route: 048
     Dates: start: 20060124
  19. SYNTHROID [Concomitant]
     Dosage: 50-75 MCG
     Route: 048
     Dates: start: 20050812
  20. CLARITIN [Concomitant]
     Dates: start: 20050812

REACTIONS (4)
  - BLOOD GLUCOSE INCREASED [None]
  - DIABETES MELLITUS [None]
  - DIABETES MELLITUS INADEQUATE CONTROL [None]
  - TYPE 2 DIABETES MELLITUS [None]
